FAERS Safety Report 5496674-7 (Version None)
Quarter: 2007Q4

REPORT INFORMATION
  Report Type: 
  Country: None (occurrence: None)
  Receive Date: 20071025
  Receipt Date: 20070629
  Transmission Date: 20080405
  Serious: No
  Sender: FDA-Public Use
  Company Number: A0661036A

PATIENT
  Age: 45 Year
  Sex: Female

DRUGS (7)
  1. ADVAIR DISKUS 100/50 [Suspect]
     Indication: ASTHMA
     Dosage: 1PUFF TWICE PER DAY
     Route: 055
     Dates: start: 20020101
  2. KLONOPIN [Concomitant]
  3. SOMA [Concomitant]
  4. PROCARDIA XL [Concomitant]
  5. IPRATROPIUM BROMIDE [Concomitant]
  6. XOPENEX [Concomitant]
  7. LORTAB [Concomitant]

REACTIONS (1)
  - CONTUSION [None]
